FAERS Safety Report 7270073-X (Version None)
Quarter: 2011Q1

REPORT INFORMATION
  Report Type: 
  Country: None (occurrence: None)
  Receive Date: 20110124
  Receipt Date: 20110124
  Transmission Date: 20110831
  Serious: No
  Sender: FDA-Public Use
  Company Number: None

PATIENT
  Sex: Female

DRUGS (1)
  1. PHENOBARBITAL TAB [Suspect]
     Dosage: ORAL
     Route: 048

REACTIONS (5)
  - BLISTER [None]
  - BURNING SENSATION [None]
  - INCORRECT DOSE ADMINISTERED [None]
  - DIARRHOEA [None]
  - GASTROINTESTINAL DISORDER [None]
